FAERS Safety Report 16164305 (Version 3)
Quarter: 2019Q2

REPORT INFORMATION
  Report Type: Spontaneous
  Country: IE (occurrence: IE)
  Receive Date: 20190405
  Receipt Date: 20190530
  Transmission Date: 20190711
  Serious: Yes (Hospitalization, Disabling, Other)
  Sender: FDA-Public Use
  Company Number: IE-JNJFOC-20190345329

PATIENT
  Age: 91 Year
  Sex: Female

DRUGS (10)
  1. MEMANTINE. [Concomitant]
     Active Substance: MEMANTINE
     Route: 048
  2. SEROQUEL [Suspect]
     Active Substance: QUETIAPINE FUMARATE
     Indication: PRODUCT USED FOR UNKNOWN INDICATION
     Route: 048
  3. NEURONTIN [Suspect]
     Active Substance: GABAPENTIN
     Indication: PRODUCT USED FOR UNKNOWN INDICATION
     Route: 048
  4. HALOPERIDOL. [Suspect]
     Active Substance: HALOPERIDOL
     Indication: PRODUCT USED FOR UNKNOWN INDICATION
     Route: 065
  5. LACTULOSE. [Concomitant]
     Active Substance: LACTULOSE
     Route: 048
  6. TRAVATAN [Concomitant]
     Active Substance: TRAVOPROST
     Route: 065
  7. DONEPEZIL. [Concomitant]
     Active Substance: DONEPEZIL
     Route: 048
  8. SENNA [Concomitant]
     Active Substance: SENNA LEAF\SENNOSIDES\SENNOSIDES A AND B
     Route: 048
  9. SEROQUEL [Suspect]
     Active Substance: QUETIAPINE FUMARATE
     Indication: PRODUCT USED FOR UNKNOWN INDICATION
     Route: 048
     Dates: end: 20180508
  10. NEURONTIN [Suspect]
     Active Substance: GABAPENTIN
     Indication: PRODUCT USED FOR UNKNOWN INDICATION
     Route: 048

REACTIONS (19)
  - Contusion [Not Recovered/Not Resolved]
  - Tremor [Not Recovered/Not Resolved]
  - Condition aggravated [Not Recovered/Not Resolved]
  - Dysarthria [Recovering/Resolving]
  - General physical health deterioration [Recovering/Resolving]
  - Wound haemorrhage [Not Recovered/Not Resolved]
  - Speech disorder [Recovering/Resolving]
  - Somnolence [Not Recovered/Not Resolved]
  - Coma [Recovering/Resolving]
  - Skin exfoliation [Not Recovered/Not Resolved]
  - Mobility decreased [Not Recovered/Not Resolved]
  - Skin injury [Not Recovered/Not Resolved]
  - Eye discharge [Not Recovered/Not Resolved]
  - Wound [Not Recovered/Not Resolved]
  - Emotional disorder [Recovering/Resolving]
  - Coordination abnormal [Not Recovered/Not Resolved]
  - Depressed mood [Not Recovered/Not Resolved]
  - Loss of personal independence in daily activities [Not Recovered/Not Resolved]
  - Emotional distress [Recovering/Resolving]

NARRATIVE: CASE EVENT DATE: 201807
